FAERS Safety Report 10311539 (Version 1)
Quarter: 2014Q3

REPORT INFORMATION
  Report Type: Spontaneous
  Country: US (occurrence: US)
  Receive Date: 20140717
  Receipt Date: 20140717
  Transmission Date: 20150326
  Serious: Yes (Other)
  Sender: FDA-Public Use
  Company Number: US-GLAXOSMITHKLINE-A1080917A

PATIENT
  Age: 24 Year
  Sex: Male

DRUGS (3)
  1. MALARONE [Suspect]
     Active Substance: ATOVAQUONE\PROGUANIL HYDROCHLORIDE
     Indication: MALARIA PROPHYLAXIS
     Dosage: 250MG PER DAY
     Route: 048
     Dates: start: 20140521, end: 20140522
  2. VALACYCLOVIR [Concomitant]
     Active Substance: VALACYCLOVIR HYDROCHLORIDE
  3. PROBIOTICS [Concomitant]
     Active Substance: PROBIOTICS NOS

REACTIONS (16)
  - Cough [Unknown]
  - Dizziness [Unknown]
  - Decreased appetite [Not Recovered/Not Resolved]
  - Weight decreased [Unknown]
  - Paraesthesia [Not Recovered/Not Resolved]
  - Ear discomfort [Unknown]
  - Vomiting [Unknown]
  - Diarrhoea [Recovered/Resolved]
  - Muscle twitching [Not Recovered/Not Resolved]
  - Agitation [Unknown]
  - Abdominal pain upper [Not Recovered/Not Resolved]
  - Hypoaesthesia [Unknown]
  - Burning sensation [Not Recovered/Not Resolved]
  - Headache [Unknown]
  - Mental impairment [Not Recovered/Not Resolved]
  - Musculoskeletal discomfort [Unknown]

NARRATIVE: CASE EVENT DATE: 20140521
